FAERS Safety Report 7001578-4 (Version None)
Quarter: 2010Q3

REPORT INFORMATION
  Report Type: 
  Country: None (occurrence: None)
  Receive Date: 20100920
  Receipt Date: 20100909
  Transmission Date: 20110219
  Serious: Yes (Other)
  Sender: FDA-Public Use
  Company Number: US-SANOFI-AVENTIS-2010SA054776

PATIENT
  Age: 46 Year
  Sex: Female

DRUGS (3)
  1. LANTUS [Suspect]
     Indication: TYPE 2 DIABETES MELLITUS
     Route: 058
     Dates: start: 20070101, end: 20090101
  2. LANTUS [Suspect]
     Dosage: DOSE:70 UNIT(S)
     Route: 058
     Dates: start: 20100901
  3. OPTICLICK [Suspect]
     Indication: TYPE 2 DIABETES MELLITUS
     Dates: start: 20080101

REACTIONS (1)
  - MYOCARDIAL INFARCTION [None]
